FAERS Safety Report 4929529-4 (Version None)
Quarter: 2006Q1

REPORT INFORMATION
  Report Type: 
  Country: None (occurrence: None)
  Receive Date: 20060224
  Receipt Date: 20060208
  Transmission Date: 20060701
  Serious: Yes (Hospitalization)
  Sender: FDA-Public Use
  Company Number: PAR_0508_2006

PATIENT
  Age: 17 Year
  Sex: Male

DRUGS (2)
  1. IBUPROFEN [Suspect]
     Indication: INFLUENZA
     Dosage: 1200 MG QDAY PO
     Route: 048
  2. ACETAMINOPHEN [Suspect]
     Indication: INFLUENZA
     Dosage: DF

REACTIONS (19)
  - BLOOD CALCITONIN INCREASED [None]
  - CHILLS [None]
  - CSF BACTERIA IDENTIFIED [None]
  - CSF GLUCOSE DECREASED [None]
  - CSF PROTEIN INCREASED [None]
  - CSF WHITE BLOOD CELL COUNT INCREASED [None]
  - GENERAL PHYSICAL HEALTH DETERIORATION [None]
  - HEADACHE [None]
  - HEART RATE INCREASED [None]
  - INFLUENZA [None]
  - KERNIG'S SIGN [None]
  - LYMPHOCYTOSIS [None]
  - MENINGOCOCCAL INFECTION [None]
  - MUSCULOSKELETAL STIFFNESS [None]
  - MYALGIA [None]
  - PHOTOPHOBIA [None]
  - PYREXIA [None]
  - VOMITING [None]
  - WHITE BLOOD CELL COUNT INCREASED [None]
